FAERS Safety Report 9088405 (Version 1)
Quarter: 2013Q1

REPORT INFORMATION
  Report Type: Spontaneous
  Country: US (occurrence: US)
  Receive Date: 20130130
  Receipt Date: 20130130
  Transmission Date: 20140127
  Serious: No
  Sender: FDA-Public Use
  Company Number: US-ABBOTT-12P-163-0983817-00

PATIENT
  Age: 46 Year
  Sex: Male
  Weight: 90.8 kg

DRUGS (3)
  1. HUMIRA [Suspect]
     Indication: PSORIASIS
     Route: 058
     Dates: start: 20120919
  2. TRIAMCINOLONE [Concomitant]
     Indication: PSORIASIS
  3. CLOBETASOL [Concomitant]
     Indication: PSORIASIS

REACTIONS (1)
  - Injection site haemorrhage [Recovered/Resolved]
